FAERS Safety Report 6120934-X (Version None)
Quarter: 2009Q1

REPORT INFORMATION
  Report Type: 
  Country: None (occurrence: None)
  Receive Date: 20090312
  Receipt Date: 20090312
  Transmission Date: 20090719
  Serious: Yes (Other)
  Sender: FDA-Public Use
  Company Number: None

PATIENT
  Age: 54 Year
  Sex: Female

DRUGS (1)
  1. CITALOPRAM HYDROBROMIDE [Suspect]
     Indication: DEPRESSION
     Dosage: TAKE 3 TABLETS ORALLY ONCE DAILY
     Route: 048

REACTIONS (2)
  - DEPRESSION [None]
  - PRODUCT QUALITY ISSUE [None]
